FAERS Safety Report 9224422 (Version 2)
Quarter: 2013Q3

REPORT INFORMATION
  Report Type: Spontaneous
  Country: US (occurrence: None)
  Receive Date: 20120914
  Receipt Date: 20130916
  Transmission Date: 20140515
  Serious: Yes (Other)
  Sender: FDA-Public Use
  Company Number: JPI-P-021053

PATIENT
  Age: 64 Year
  Sex: Male
  Weight: 85.73 kg

DRUGS (2)
  1. XYREM [Suspect]
     Indication: NARCOLEPSY
     Route: 048
     Dates: start: 20120406, end: 201204
  2. MULTIPLE UNSPECIFIED MEDICATIONS [Concomitant]

REACTIONS (6)
  - Blood pressure increased [None]
  - Dysuria [None]
  - Dysphemia [None]
  - Dizziness [None]
  - Dizziness [None]
  - Memory impairment [None]
